FAERS Safety Report 4639483-0 (Version None)
Quarter: 2005Q2

REPORT INFORMATION
  Report Type: 
  Country: None (occurrence: None)
  Receive Date: 20050418
  Receipt Date: 20050411
  Transmission Date: 20051028
  Serious: Yes (Hospitalization, Other)
  Sender: FDA-Public Use
  Company Number: HQWYE137007FEB05

PATIENT
  Age: 24 Year
  Sex: Female

DRUGS (4)
  1. ADVIL [Suspect]
     Indication: NASOPHARYNGITIS
     Dosage: 1 TABLET TWICE DAILY ORAL
     Route: 048
     Dates: start: 20050111, end: 20050114
  2. DERINOX (CETRIMONIUM BROMIDE/NAPHAZOLINE NITRATE/PHENYLEPHRINE HYDROCH [Suspect]
     Indication: NASOPHARYNGITIS
     Dosage: NASAL
     Route: 045
     Dates: start: 20050111, end: 20050115
  3. RHINADVIL (IBUPROFEN/PSEUDOEPHEDRINE HYDROCHLORIDE, TABLET) [Suspect]
     Indication: NASOPHARYNGITIS
     Dosage: 4 TABLETS DAILY ORAL
     Route: 048
     Dates: start: 20050111, end: 20050114
  4. CLARITHROMYCIN [Concomitant]

REACTIONS (2)
  - HEMIPARESIS [None]
  - HYPERTENSION [None]
